FAERS Safety Report 18354634 (Version 2)
Quarter: 2021Q1

REPORT INFORMATION
  Report Type: Report from Study
  Country: BR (occurrence: BR)
  Receive Date: 20201007
  Receipt Date: 20210304
  Transmission Date: 20210419
  Serious: Yes (Other)
  Sender: FDA-Public Use
  Company Number: BR-TAKEDA-2020TUS041591

PATIENT
  Sex: Female

DRUGS (1)
  1. VEDOLIZUMAB [Suspect]
     Active Substance: VEDOLIZUMAB
     Indication: CROHN^S DISEASE
     Dosage: 300 MILLIGRAM
     Route: 042
     Dates: start: 20190927

REACTIONS (8)
  - Panic attack [Recovering/Resolving]
  - Stress [Recovering/Resolving]
  - Inappropriate schedule of product administration [Unknown]
  - Decreased appetite [Recovering/Resolving]
  - Thermal burn [Recovering/Resolving]
  - Insomnia [Recovering/Resolving]
  - Accident at home [Recovering/Resolving]
  - Headache [Recovering/Resolving]
